FAERS Safety Report 13988115 (Version 2)
Quarter: 2017Q3

REPORT INFORMATION
  Report Type: Spontaneous
  Country: DE (occurrence: DE)
  Receive Date: 20170919
  Receipt Date: 20170928
  Transmission Date: 20171128
  Serious: Yes (Other)
  Sender: FDA-Public Use
  Company Number: DE-TEVA-805415GER

PATIENT
  Age: 65 Year
  Sex: Female

DRUGS (4)
  1. CYTARABINE. [Concomitant]
     Active Substance: CYTARABINE
     Indication: HAEMATOPOIETIC STEM CELL MOBILISATION
     Dosage: 3000 MG/M2 DAILY; AT DAY 1 AND 2
     Route: 042
  2. THIOTEPA. [Concomitant]
     Active Substance: THIOTEPA
     Indication: HAEMATOPOIETIC STEM CELL MOBILISATION
     Dosage: 40 MG/M2 DAILY; AT DAY 2
     Route: 042
  3. RITUXIMAB. [Concomitant]
     Active Substance: RITUXIMAB
     Indication: HAEMATOPOIETIC STEM CELL MOBILISATION
     Dosage: 375 MG/M2 DAILY; AT DAY 0
     Route: 042
  4. G-CSF (TEVAGRASTIM/RATIOGRASTIM) [Suspect]
     Active Substance: FILGRASTIM
     Indication: HAEMATOPOIETIC STEM CELL MOBILISATION
     Dosage: 5 MICROGRAM/KG DAILY; STARTED ON DAY 5
     Route: 058

REACTIONS (1)
  - Temporal arteritis [Recovered/Resolved]
